FAERS Safety Report 8447611-4 (Version None)
Quarter: 2012Q2

REPORT INFORMATION
  Report Type: 
  Country: None (occurrence: None)
  Receive Date: 20120619
  Receipt Date: 20120613
  Transmission Date: 20120825
  Serious: Yes (Hospitalization)
  Sender: FDA-Public Use
  Company Number: BE-PFIZER INC-2012141859

PATIENT
  Age: 77 Year
  Sex: Male

DRUGS (4)
  1. CYTARABINE [Suspect]
     Indication: B-CELL LYMPHOMA
     Dosage: 3384 MG, 1X/DAY
     Route: 042
     Dates: start: 20120602, end: 20120603
  2. CISPLATIN [Suspect]
     Indication: B-CELL LYMPHOMA
     Dosage: 170 MG, 1X/DAY
     Route: 042
     Dates: start: 20120601
  3. RITUXIMAB [Suspect]
     Indication: B-CELL LYMPHOMA
     Dosage: UNK
     Route: 042
     Dates: start: 20120418, end: 20120522
  4. GEMCITABINE [Suspect]
     Indication: B-CELL LYMPHOMA
     Dosage: UNK
     Route: 042
     Dates: start: 20120418, end: 20120522

REACTIONS (1)
  - FEBRILE NEUTROPENIA [None]
